FAERS Safety Report 4765023-1 (Version None)
Quarter: 2005Q3

REPORT INFORMATION
  Report Type: 
  Country: None (occurrence: None)
  Receive Date: 20050909
  Receipt Date: 20050824
  Transmission Date: 20060218
  Serious: Yes (Death)
  Sender: FDA-Public Use
  Company Number: US-BRISTOL-MYERS SQUIBB COMPANY-13106448

PATIENT

DRUGS (6)
  1. CYCLOPHOSPHAMIDE [Suspect]
     Indication: CHEMOTHERAPY
  2. IFOSFAMIDE [Suspect]
     Indication: CHEMOTHERAPY
  3. DOXORUBICIN [Suspect]
     Indication: CHEMOTHERAPY
  4. ETOPOSIDE [Suspect]
     Indication: CHEMOTHERAPY
  5. VINCRISTINE [Suspect]
     Indication: CHEMOTHERAPY
  6. DACTINOMYCIN [Suspect]
     Indication: CHEMOTHERAPY

REACTIONS (1)
  - CANDIDA SEPSIS [None]
